FAERS Safety Report 9062416 (Version 2)
Quarter: 2013Q3

REPORT INFORMATION
  Report Type: Report from Study
  Country: KR (occurrence: KR)
  Receive Date: 20130213
  Receipt Date: 20130916
  Transmission Date: 20140515
  Serious: Yes (Hospitalization)
  Sender: FDA-Public Use
  Company Number: KR-GLAXOSMITHKLINE-B0867227A

PATIENT
  Age: 42 Year
  Sex: Female
  Weight: 41.4 kg

DRUGS (4)
  1. PAZOPANIB [Suspect]
     Indication: RENAL CELL CARCINOMA
     Dosage: 800MG PER DAY
     Route: 048
     Dates: start: 20120831, end: 20121202
  2. TRIDOL [Concomitant]
     Indication: PAIN
     Dosage: 50MG THREE TIMES PER DAY
     Route: 048
     Dates: start: 20121112, end: 20121115
  3. CILNIDIPINE [Concomitant]
     Indication: HYPERTENSION
     Dosage: 10MG TWICE PER DAY
     Route: 048
     Dates: start: 20121111, end: 20121120
  4. SODIUM BICARBONATE [Concomitant]
     Indication: STOMATITIS
     Dosage: 500ML AS REQUIRED
     Route: 002
     Dates: start: 20121114, end: 20121120

REACTIONS (2)
  - Ascites [Recovered/Resolved]
  - Pleural effusion [Recovered/Resolved]
